FAERS Safety Report 19468344 (Version 2)
Quarter: 2021Q3

REPORT INFORMATION
  Report Type: Spontaneous
  Country: US (occurrence: US)
  Receive Date: 20210628
  Receipt Date: 20210709
  Transmission Date: 20211014
  Serious: Yes (Other)
  Sender: FDA-Public Use
  Company Number: US-PFIZER INC-2020408831

PATIENT
  Sex: Female
  Weight: 95.71 kg

DRUGS (5)
  1. DILANTIN [Suspect]
     Active Substance: PHENYTOIN
     Indication: SEIZURE
     Dosage: 300 MG, DAILY (200 MG IN AM, 100 MG AT NIGHT)
     Route: 048
     Dates: start: 1980
  2. DILANTIN [Suspect]
     Active Substance: PHENYTOIN
     Dosage: 360 MG, DAILY (100 MG, 3X A DAY; 30 MG 2X A DAY)
  3. DILANTIN [Suspect]
     Active Substance: PHENYTOIN
     Dosage: 360 MG, ALTERNATE DAY
     Route: 048
  4. DILANTIN [Suspect]
     Active Substance: PHENYTOIN
     Dosage: UNK
     Dates: start: 1992
  5. DILANTIN [Suspect]
     Active Substance: PHENYTOIN
     Dosage: 330 MG, ALTERNATE DAY
     Route: 048

REACTIONS (1)
  - Therapeutic product effect decreased [Recovered/Resolved]
